FAERS Safety Report 4700745-X (Version None)
Quarter: 2005Q2

REPORT INFORMATION
  Report Type: 
  Country: None (occurrence: None)
  Receive Date: 20050627
  Receipt Date: 20050613
  Transmission Date: 20051028
  Serious: Yes (Hospitalization)
  Sender: FDA-Public Use
  Company Number: 2005FR-00026

PATIENT
  Age: 96 Year

DRUGS (5)
  1. ASPIRIN [Suspect]
     Dosage: 75 MG, ONCE DAILY, ORAL
     Route: 048
  2. ACETAMINOPHEN [Concomitant]
  3. COSOPT [Concomitant]
  4. LATANOPROST [Concomitant]
  5. FUROSEMIDE [Concomitant]

REACTIONS (2)
  - GASTRITIS EROSIVE [None]
  - HAEMOGLOBIN DECREASED [None]
